FAERS Safety Report 21760440 (Version 1)
Quarter: 2022Q4

REPORT INFORMATION
  Report Type: Spontaneous
  Country: US (occurrence: None)
  Receive Date: 20221221
  Receipt Date: 20221221
  Transmission Date: 20230112
  Serious: Yes (Other)
  Sender: FDA-Public Use
  Company Number: 2022A410042

PATIENT
  Age: 49 Year
  Sex: Female

DRUGS (2)
  1. TAGRISSO [Suspect]
     Active Substance: OSIMERTINIB
     Indication: Neoplasm
     Route: 048
     Dates: start: 20211222
  2. TAGRISSO [Suspect]
     Active Substance: OSIMERTINIB
     Indication: Neoplasm
     Route: 048

REACTIONS (9)
  - Malignant neoplasm progression [Unknown]
  - Illness [Unknown]
  - Pain [Unknown]
  - Skin disorder [Recovering/Resolving]
  - Stomatitis [Recovering/Resolving]
  - Peripheral swelling [Unknown]
  - Feeding disorder [Recovering/Resolving]
  - Inflammation [Unknown]
  - Drug ineffective [Unknown]

NARRATIVE: CASE EVENT DATE: 20211222
